FAERS Safety Report 17796359 (Version 1)
Quarter: 2020Q2

REPORT INFORMATION
  Report Type: Spontaneous
  Country: BR (occurrence: BR)
  Receive Date: 20200517
  Receipt Date: 20200517
  Transmission Date: 20200714
  Serious: Yes (Hospitalization)
  Sender: FDA-Public Use
  Company Number: BR-ABBVIE-20P-020-3234070-00

PATIENT
  Sex: Male
  Weight: 70 kg

DRUGS (9)
  1. PHENYTOIN. [Concomitant]
     Active Substance: PHENYTOIN
     Indication: SEIZURE
     Dosage: MORNING/ NIGHT (SAME TIME AS DEPAKENE); ONGOING; DAILY DOSE: 4 TABLETS
     Route: 048
     Dates: start: 2002
  2. SIMVASTATIN. [Concomitant]
     Active Substance: SIMVASTATIN
     Indication: BLOOD CHOLESTEROL ABNORMAL
     Dosage: 1 TABLET AT NIGHT; STARTED BETWEEN 10 TO 12 YEARS AGO APPROXIMATELY; ONGOING
     Route: 048
  3. GLIFAGE [Concomitant]
     Active Substance: METFORMIN HYDROCHLORIDE
     Indication: DIABETES MELLITUS
     Dosage: 1 TABLET AFTER LUNCH; STARTED AROUND 6 MONTHS AGO; GLIFAGE XR (METFORMINE CHLORIDRATE)
     Route: 048
     Dates: start: 2019
  4. PURAN [Concomitant]
     Active Substance: LEVOTHYROXINE SODIUM
     Indication: THYROID THERAPY
     Dosage: 1 TABLET IN MORNING; STARTED AROUND BETWEEN 12 TO 15 YEARS AGO; ONGOING
     Route: 048
  5. EXODUS [Concomitant]
     Indication: SUPPORTIVE CARE
  6. DEPAKENE [Suspect]
     Active Substance: VALPROIC ACID
     Indication: SEIZURE
     Dosage: 4 TABLETS; 2 TAB MORNING/ 2 TAB NIGHT;DISCONTINUED 3 OR 4 MONTHS AGO; REPLACED BY EPILENIL
     Route: 048
     Dates: start: 2002, end: 2019
  7. EPILENIL [Suspect]
     Active Substance: VALPROIC ACID
     Indication: SEIZURE
     Dosage: 4 TABLETS;2 TABLETS IN THE MORNING AND 2 TABLETS AT NIGHT; SINCE AROUND 4 OR 3 MONTHS AGO
     Route: 048
     Dates: start: 2019
  8. DEPAKENE [Suspect]
     Active Substance: VALPROIC ACID
     Route: 048
  9. EXODUS [Concomitant]
     Indication: ANXIETY
     Dosage: 1 TABLET BEFORE LUNCH; STARTED AROUND 15 DAYS AGO; ONGOING
     Route: 048
     Dates: start: 201912

REACTIONS (10)
  - Seizure [Recovered/Resolved]
  - Dizziness [Recovering/Resolving]
  - Product dispensing error [Unknown]
  - Wrong product administered [Unknown]
  - Off label use [Unknown]
  - Muscular weakness [Not Recovered/Not Resolved]
  - Dysstasia [Not Recovered/Not Resolved]
  - Product prescribing error [Unknown]
  - Electroencephalogram abnormal [Unknown]
  - Emotional disorder [Unknown]

NARRATIVE: CASE EVENT DATE: 2002
